FAERS Safety Report 15736778 (Version 1)
Quarter: 2018Q4

REPORT INFORMATION
  Report Type: Spontaneous
  Country: US (occurrence: US)
  Receive Date: 20181218
  Receipt Date: 20181218
  Transmission Date: 20190205
  Serious: No
  Sender: FDA-Public Use
  Company Number: US-PERRIGO-18US006318

PATIENT
  Age: 77 Year
  Sex: Female
  Weight: 49.89 kg

DRUGS (3)
  1. VITAMINS NOS [Concomitant]
     Active Substance: VITAMINS
     Indication: SUPPLEMENTATION THERAPY
     Dosage: UNK
     Route: 048
  2. BACITRACIN. [Suspect]
     Active Substance: BACITRACIN
     Indication: CHALAZION
     Dosage: TINY AMOUNT, TID TO RIGHT EYE
     Route: 047
     Dates: start: 20180606, end: 20180608
  3. BACITRACIN. [Suspect]
     Active Substance: BACITRACIN
     Dosage: TINY AMOUNT, QHS TO RIGHT EYE
     Route: 047
     Dates: start: 20180609, end: 20180612

REACTIONS (6)
  - Ocular hyperaemia [Not Recovered/Not Resolved]
  - Condition aggravated [Not Recovered/Not Resolved]
  - Drug ineffective [Unknown]
  - Vision blurred [Unknown]
  - Eye pruritus [Not Recovered/Not Resolved]
  - Eye swelling [Recovering/Resolving]

NARRATIVE: CASE EVENT DATE: 20180606
